FAERS Safety Report 8345580-9 (Version None)
Quarter: 2012Q2

REPORT INFORMATION
  Report Type: 
  Country: None (occurrence: None)
  Receive Date: 20120508
  Receipt Date: 20120507
  Transmission Date: 20120825
  Serious: Yes (Other)
  Sender: FDA-Public Use
  Company Number: US-ROCHE-1037944

PATIENT
  Sex: Male

DRUGS (9)
  1. VEMURAFENIB [Suspect]
     Indication: THYROID CANCER
     Dosage: LAST DOSE PRIOR TO EVENT: 18/01/2012
     Route: 048
     Dates: start: 20111027
  2. LEVOTHYROXINE SODIUM [Concomitant]
     Indication: HYPOTHYROIDISM
     Route: 048
     Dates: start: 20100305
  3. AMMONIUM LACTATE [Concomitant]
     Indication: DRY SKIN
     Dosage: 1 APPLICATION
     Dates: start: 20111020
  4. CICLOPIROX [Concomitant]
     Indication: TINEA CRURIS
     Dosage: 1 APPLICATION
     Dates: start: 20111020
  5. DIAZEPAM [Concomitant]
     Indication: BACK PAIN
     Route: 048
     Dates: start: 20111020
  6. AMLODIPINE [Concomitant]
     Route: 048
     Dates: start: 20111121
  7. PSYLLIUM [Concomitant]
     Indication: CONSTIPATION
     Route: 048
     Dates: start: 20110916
  8. METOCLOPRAMIDE [Concomitant]
     Indication: NAUSEA
     Route: 048
     Dates: start: 20111020
  9. AMLODIPINE [Concomitant]
     Indication: HYPERTENSION
     Route: 048
     Dates: start: 20110916, end: 20111120

REACTIONS (1)
  - DERMAL CYST [None]
